FAERS Safety Report 18815763 (Version 1)
Quarter: 2021Q1

REPORT INFORMATION
  Report Type: Spontaneous
  Country: US (occurrence: US)
  Receive Date: 20210201
  Receipt Date: 20210201
  Transmission Date: 20210419
  Serious: No
  Sender: FDA-Public Use
  Company Number: None

PATIENT
  Age: 57 Year
  Sex: Female
  Weight: 107 kg

DRUGS (16)
  1. FERROUS SULFATE 220 MG/5 ML SOLUTION [Concomitant]
  2. METFORMIN ER 500 MG TAB [Concomitant]
     Active Substance: METFORMIN HYDROCHLORIDE
  3. AMLODIPINE [Concomitant]
     Active Substance: AMLODIPINE BESYLATE
  4. ATORVASTATIN 20 MG TABLET [Concomitant]
     Active Substance: ATORVASTATIN
  5. BENZONATATE 100 MG CAPSULE [Concomitant]
     Active Substance: BENZONATATE
     Dates: start: 20210104
  6. DESMOPRESSIN 10 MCG/SPRAY NASAL SPRAY [Concomitant]
  7. METAMUCIL POWDER [Concomitant]
  8. BAMLANIVIMAB. [Suspect]
     Active Substance: BAMLANIVIMAB
     Indication: COVID-19
     Dosage: ?          OTHER FREQUENCY:ONCE;?
     Route: 041
  9. VITAMIN C TABLET [Concomitant]
  10. NORTRIPTYLINE 10 MG CAPSULE [Concomitant]
  11. SPIRONOLACTONE 25 MG TAB [Concomitant]
  12. ALBUTEROL 90 MCG/ACT MDI [Concomitant]
     Dates: start: 20210106
  13. ASPIRIN 81 MG CHEWABLE TABLET [Concomitant]
  14. HYDROCHLOROTHIAZIDE 25 MG TAB [Concomitant]
  15. AZITHROMYCIN 250 MG TABLET [Concomitant]
     Active Substance: AZITHROMYCIN ANHYDROUS
     Dates: start: 20210106, end: 20210111
  16. DOCUSATE 100 MG CAPSULE [Concomitant]
     Active Substance: DOCUSATE SODIUM

REACTIONS (1)
  - Headache [None]

NARRATIVE: CASE EVENT DATE: 20210106
